FAERS Safety Report 15494388 (Version 1)
Quarter: 2018Q4

REPORT INFORMATION
  Report Type: Spontaneous
  Country: US (occurrence: US)
  Receive Date: 20181012
  Receipt Date: 20181012
  Transmission Date: 20190205
  Serious: Yes (Other)
  Sender: FDA-Public Use
  Company Number: US-SA-2018SA279810

PATIENT
  Age: 57 Year
  Sex: Female
  Weight: 94 kg

DRUGS (10)
  1. TAXOTERE [Suspect]
     Active Substance: DOCETAXEL
     Indication: BREAST CANCER FEMALE
     Dosage: 165 MG, Q3W
     Route: 042
     Dates: start: 20090319, end: 20090319
  2. TAXOTERE [Suspect]
     Active Substance: DOCETAXEL
     Dosage: 165 MG, Q3W
     Route: 042
     Dates: start: 20130122, end: 20130122
  3. HERCEPTIN [Concomitant]
     Active Substance: TRASTUZUMAB
     Dosage: UNK UNK, UNK
     Route: 065
  4. CRESTOR [Concomitant]
     Active Substance: ROSUVASTATIN CALCIUM
     Dosage: UNK
     Dates: start: 2007
  5. CARVEDILOL. [Concomitant]
     Active Substance: CARVEDILOL
     Dosage: UNK
     Dates: start: 2009
  6. ASPIRIN [ACETYLSALICYLIC ACID] [Concomitant]
     Active Substance: ASPIRIN
     Dosage: UNK
     Dates: start: 2009
  7. PARAPLATIN [Concomitant]
     Active Substance: CARBOPLATIN
     Dosage: UNK UNK, UNK
     Route: 065
  8. CLOPIDOGREL [Concomitant]
     Active Substance: CLOPIDOGREL BISULFATE
     Dosage: UNK
     Dates: start: 2009
  9. LISINOPRIL. [Concomitant]
     Active Substance: LISINOPRIL
     Dosage: UNK
     Dates: start: 1992
  10. GABAPENTIN. [Concomitant]
     Active Substance: GABAPENTIN
     Dosage: UNK
     Dates: start: 2005

REACTIONS (2)
  - Alopecia [Recovering/Resolving]
  - Psychological trauma [Unknown]

NARRATIVE: CASE EVENT DATE: 20130722
